FAERS Safety Report 5813728-3 (Version None)
Quarter: 2008Q3

REPORT INFORMATION
  Report Type: 
  Country: None (occurrence: None)
  Receive Date: 20080711
  Receipt Date: 20080627
  Transmission Date: 20090109
  Serious: Yes (Hospitalization, Disabling)
  Sender: FDA-Public Use
  Company Number: ANTA0800070

PATIENT
  Age: 61 Year
  Sex: Male

DRUGS (4)
  1. FENOFIBRATE [Suspect]
     Indication: HYPERLIPIDAEMIA
     Dates: start: 20070301
  2. DOXYCYCLINE [Concomitant]
  3. VYTORIN [Concomitant]
  4. CAPOTEN [Concomitant]

REACTIONS (14)
  - ANAEMIA HAEMOLYTIC AUTOIMMUNE [None]
  - CATHETER RELATED INFECTION [None]
  - DIZZINESS [None]
  - DYSPEPSIA [None]
  - ERUCTATION [None]
  - HAEMODIALYSIS [None]
  - MUSCULAR WEAKNESS [None]
  - NAUSEA [None]
  - ORTHOSTATIC HYPOTENSION [None]
  - POLLAKIURIA [None]
  - SINUS CONGESTION [None]
  - STAPHYLOCOCCAL INFECTION [None]
  - SYNCOPE [None]
  - URINE COLOUR ABNORMAL [None]
